FAERS Safety Report 13091012 (Version 1)
Quarter: 2017Q1

REPORT INFORMATION
  Report Type: Other
  Country: JP (occurrence: JP)
  Receive Date: 20170106
  Receipt Date: 20170106
  Transmission Date: 20170428
  Serious: Yes (Death)
  Sender: FDA-Public Use
  Company Number: JP-LUPIN PHARMACEUTICALS INC.-2016-05374

PATIENT
  Age: 55 Year
  Sex: Female

DRUGS (2)
  1. PIMOZIDE. [Suspect]
     Active Substance: PIMOZIDE
     Indication: DELUSIONAL DISORDER, UNSPECIFIED TYPE
     Route: 065
  2. CLARITHROMYCIN. [Suspect]
     Active Substance: CLARITHROMYCIN
     Indication: INNER EAR INFLAMMATION
     Route: 065

REACTIONS (2)
  - Drug interaction [Fatal]
  - Electrocardiogram QT prolonged [Fatal]
